FAERS Safety Report 14060982 (Version 1)
Quarter: 2017Q4

REPORT INFORMATION
  Report Type: Spontaneous
  Country: FR (occurrence: FR)
  Receive Date: 20171007
  Receipt Date: 20171007
  Transmission Date: 20180321
  Serious: Yes (Other)
  Sender: FDA-Public Use
  Company Number: FR-MERCK KGAA-2029248

PATIENT
  Age: 72 Year
  Sex: Male
  Weight: 86 kg

DRUGS (4)
  1. LEVEMIR [Concomitant]
     Active Substance: INSULIN DETEMIR
  2. NOVOTHYROX [Suspect]
     Active Substance: LEVOTHYROXINE SODIUM
     Indication: HYPOTHYROIDISM
     Route: 048
     Dates: start: 20170730, end: 20170820
  3. STAGID (METFORMIN EMBONATE) [Concomitant]
     Active Substance: METFORMIN PAMOATE
  4. DAONIL(GLIBENCLAMIDE) [Concomitant]

REACTIONS (3)
  - Arthralgia [Recovered/Resolved]
  - Pollakiuria [Recovered/Resolved]
  - Myalgia [Recovered/Resolved]

NARRATIVE: CASE EVENT DATE: 201708
